FAERS Safety Report 10750587 (Version 1)
Quarter: 2015Q1

REPORT INFORMATION
  Report Type: Spontaneous
  Country: US (occurrence: None)
  Receive Date: 20150123
  Receipt Date: 20150123
  Transmission Date: 20150721
  Serious: Yes (Other)
  Sender: FDA-Public Use
  Company Number: 2014AP004548

PATIENT
  Age: 21 Year
  Sex: Female

DRUGS (4)
  1. LITHIUM CARBONATE. [Suspect]
     Active Substance: LITHIUM CARBONATE
     Indication: AFFECTIVE DISORDER
     Dosage: EVERY MORNING
  2. HALOPERIDOL. [Suspect]
     Active Substance: HALOPERIDOL
     Indication: AFFECTIVE DISORDER
  3. DIPHENHYDRAMINE (DIPHENHYDRAMINE) [Concomitant]
     Active Substance: DIPHENHYDRAMINE
  4. HALOPERIDOL (HALOPERIDOL DECANOATE) [Concomitant]

REACTIONS (2)
  - Neurotoxicity [None]
  - Drug interaction [None]
